FAERS Safety Report 17179590 (Version 2)
Quarter: 2020Q4

REPORT INFORMATION
  Report Type: Report from Study
  Country: None (occurrence: US)
  Receive Date: 20191220
  Receipt Date: 20201229
  Transmission Date: 20210113
  Serious: Yes (Hospitalization)
  Sender: FDA-Public Use
  Company Number: US-ABBVIE-19K-163-3195898-00

PATIENT
  Sex: Female

DRUGS (2)
  1. VENCLEXTA [Suspect]
     Active Substance: VENETOCLAX
     Indication: ACUTE PROMYELOCYTIC LEUKAEMIA
     Route: 048
     Dates: end: 20191202
  2. VENCLEXTA [Suspect]
     Active Substance: VENETOCLAX
     Indication: BONE MARROW TRANSPLANT

REACTIONS (4)
  - Nausea [Unknown]
  - Vomiting [Unknown]
  - Stem cell transplant [Unknown]
  - Off label use [Unknown]

NARRATIVE: CASE EVENT DATE: 2019
